FAERS Safety Report 6944564-2 (Version None)
Quarter: 2010Q3

REPORT INFORMATION
  Report Type: 
  Country: None (occurrence: None)
  Receive Date: 20100827
  Receipt Date: 20100816
  Transmission Date: 20110219
  Serious: No
  Sender: FDA-Public Use
  Company Number: TR-ELI_LILLY_AND_COMPANY-TR201006006405

PATIENT
  Age: 40 Year
  Sex: Female

DRUGS (3)
  1. HUMULIN N [Suspect]
     Indication: GESTATIONAL DIABETES
     Dosage: 12 U, DAILY (1/D)
     Route: 058
  2. MEGADYN PRONATAL [Concomitant]
     Dosage: UNK, DAILY (1/D)
  3. IRON [Concomitant]
     Dosage: UNK, DAILY (1/D)

REACTIONS (1)
  - DRUG EXPOSURE DURING PREGNANCY [None]
